FAERS Safety Report 8371226-X (Version None)
Quarter: 2012Q2

REPORT INFORMATION
  Report Type: 
  Country: None (occurrence: None)
  Receive Date: 20120518
  Receipt Date: 20120509
  Transmission Date: 20120825
  Serious: Yes (Hospitalization, Other)
  Sender: FDA-Public Use
  Company Number: US-ASTRAZENECA-2010SE51004

PATIENT
  Age: 53 Year
  Sex: Female
  Weight: 131.5 kg

DRUGS (37)
  1. VITAMIN D-2 [Concomitant]
     Route: 048
  2. TYLENOL [Concomitant]
  3. SEROQUEL [Suspect]
     Indication: BIPOLAR DISORDER
     Route: 048
  4. SEROQUEL [Suspect]
     Indication: ANXIETY
     Route: 048
  5. SEROQUEL [Suspect]
     Route: 048
  6. TETRACAINE POLYGYL STERILE OPHTHALMIC SOLUTION [Concomitant]
     Dosage: EPINEPHRINE 0.003%
  7. LORTAB [Concomitant]
     Dosage: 7.5/500MG, EVERY FOUR HOURS AS NEEDED
     Route: 048
  8. WELLBUTRIN SR [Concomitant]
     Route: 048
  9. LASIX [Concomitant]
  10. SODIUM CHLORIDE [Concomitant]
     Route: 042
  11. COLACE [Concomitant]
  12. SYMBICORT [Suspect]
     Dosage: 160/4.5MCG, TWO PUFFS TWICE DAILY
     Route: 055
  13. SEROQUEL [Suspect]
     Route: 048
  14. LORAZEPAM [Concomitant]
     Indication: ANXIETY
  15. BUPROPION HYDROCHLORIDE [Concomitant]
     Indication: DEPRESSION
  16. LAMICTAL [Concomitant]
     Route: 048
  17. NAPROXEN [Concomitant]
     Indication: ARTHRALGIA
  18. DOXYCYCLINE CALCIUM [Concomitant]
     Indication: CELLULITIS
  19. LOPRESSOR [Concomitant]
     Route: 048
  20. ATIVAN [Concomitant]
     Dosage: 1-2MG THREE TIMES DAILY AS NEEDED.
     Route: 048
  21. KEFLEX [Concomitant]
  22. SEROQUEL [Suspect]
     Indication: INSOMNIA
     Route: 048
  23. SEROQUEL [Suspect]
     Route: 048
  24. ASPIRIN [Concomitant]
     Indication: CARDIOVASCULAR EVENT PROPHYLAXIS
  25. DILTIAZEM [Concomitant]
     Indication: HYPERTENSION
  26. BUPROPION HYDROCHLORIDE [Concomitant]
     Indication: ANXIETY
  27. HYDROCODONE [Concomitant]
     Indication: ARTHRALGIA
     Dosage: 7.5/500 PRN
  28. FENTANYL CITRATE [Concomitant]
     Dosage: 50MCG/ML
  29. LOVENOX [Concomitant]
     Route: 058
  30. PROZAC [Concomitant]
     Indication: ANXIETY
     Route: 048
  31. ZOCOR [Concomitant]
     Indication: BLOOD CHOLESTEROL ABNORMAL
     Route: 048
  32. LISINOPRIL [Concomitant]
     Indication: CARDIAC DISORDER
  33. CALCIUM CARBONATE [Concomitant]
     Route: 048
  34. HYDRODIURIL [Concomitant]
     Route: 048
  35. HYZAAR [Concomitant]
     Dosage: 100/25 MG
  36. ALBUTEROL [Concomitant]
  37. ADVAIR DISKUS 100/50 [Concomitant]

REACTIONS (47)
  - FOOT FRACTURE [None]
  - MALAISE [None]
  - COUGH [None]
  - VASCULITIS NECROTISING [None]
  - JOINT SWELLING [None]
  - URINE OUTPUT INCREASED [None]
  - FATIGUE [None]
  - NAUSEA [None]
  - HYPERLIPIDAEMIA [None]
  - SARCOIDOSIS [None]
  - NORMOCHROMIC NORMOCYTIC ANAEMIA [None]
  - OSTEOARTHRITIS [None]
  - INFLAMMATION [None]
  - MUSCULOSKELETAL STIFFNESS [None]
  - ABDOMINAL PAIN [None]
  - LYMPHOEDEMA [None]
  - HEADACHE [None]
  - VASCULITIS [None]
  - ARTHRALGIA [None]
  - PYREXIA [None]
  - ARTHRITIS [None]
  - MUSCULAR WEAKNESS [None]
  - EYE PRURITUS [None]
  - DYSPNOEA EXERTIONAL [None]
  - LYME DISEASE [None]
  - CRYING [None]
  - HYPERTENSION [None]
  - RENAL FAILURE ACUTE [None]
  - MUSCLE SPASMS [None]
  - WHEEZING [None]
  - POLYARTERITIS NODOSA [None]
  - NEUROPATHY PERIPHERAL [None]
  - ORAL DISORDER [None]
  - HYPERCHOLESTEROLAEMIA [None]
  - FALL [None]
  - RASH [None]
  - VITAMIN D DEFICIENCY [None]
  - DIARRHOEA [None]
  - SUBCUTANEOUS NODULE [None]
  - SLEEP APNOEA SYNDROME [None]
  - ASTHMA [None]
  - PLASMA PROTEIN METABOLISM DISORDER [None]
  - LYMPHADENOPATHY MEDIASTINAL [None]
  - NASAL CONGESTION [None]
  - ABDOMINAL DISTENSION [None]
  - DRY EYE [None]
  - PETECHIAE [None]
